FAERS Safety Report 8811051 (Version 1)
Quarter: 2012Q4

REPORT INFORMATION
  Report Type: Spontaneous
  Country: US (occurrence: None)
  Receive Date: 20120925
  Receipt Date: 20120925
  Transmission Date: 20130627
  Serious: Yes (Other)
  Sender: FDA-Public Use
  Company Number: None

PATIENT
  Age: 86 Year
  Sex: Female
  Weight: 68.04 kg

DRUGS (1)
  1. PRADAXA [Suspect]
     Indication: ANTICOAGULANT THERAPY
     Dosage: 150 mg  Daily  Oral
     Route: 048
     Dates: start: 20120707, end: 20120709

REACTIONS (2)
  - Rash generalised [None]
  - Rash erythematous [None]
